FAERS Safety Report 5228788-0 (Version None)
Quarter: 2007Q1

REPORT INFORMATION
  Report Type: 
  Country: None (occurrence: None)
  Receive Date: 20070131
  Receipt Date: 20070119
  Transmission Date: 20070707
  Serious: No
  Sender: FDA-Public Use
  Company Number: M-07-0047

PATIENT
  Sex: Male
  Weight: 90.7194 kg

DRUGS (8)
  1. PACERONE [Suspect]
     Indication: VENTRICULAR ARRHYTHMIA
     Dosage: 200 MG, BID, PO
     Route: 048
     Dates: start: 20030101, end: 20070101
  2. TOPROL-XL [Concomitant]
  3. TRIAMTERENE AND HYDROCHLOROTHIAZIDE [Concomitant]
  4. ALPRAZOLAM [Concomitant]
  5. LIPITOR [Concomitant]
  6. HYDROCODONE/ACETAMINOPHEN [Concomitant]
  7. ESGIC-PLUS [Concomitant]
  8. CLONIDINE [Concomitant]

REACTIONS (6)
  - ABDOMINAL PAIN UPPER [None]
  - GASTRITIS [None]
  - HYPERTHYROIDISM [None]
  - MUSCLE SPASMS [None]
  - PHOTOPSIA [None]
  - SKIN DISCOLOURATION [None]
